FAERS Safety Report 5500631-1 (Version None)
Quarter: 2007Q4

REPORT INFORMATION
  Report Type: 
  Country: None (occurrence: None)
  Receive Date: 20071025
  Receipt Date: 20071011
  Transmission Date: 20080405
  Serious: Yes (Death, Other)
  Sender: FDA-Public Use
  Company Number: 2006US002706

PATIENT
  Age: 67 Year
  Sex: Male
  Weight: 65.8 kg

DRUGS (3)
  1. PROGRAF [Suspect]
     Indication: PROPHYLAXIS AGAINST TRANSPLANT REJECTION
     Dosage: 5 MG, BID, ORAL
     Route: 048
     Dates: start: 20051108, end: 20060119
  2. CELLCEPT [Concomitant]
  3. RAPAMYCIN (SIROLIMUS) [Concomitant]

REACTIONS (4)
  - MULTIPLE MYELOMA [None]
  - PARAPROTEINAEMIA [None]
  - PLASMACYTOMA [None]
  - PLEURAL EFFUSION [None]
